FAERS Safety Report 11146236 (Version 2)
Quarter: 2015Q2

REPORT INFORMATION
  Report Type: Spontaneous
  Country: JP (occurrence: JP)
  Receive Date: 20150528
  Receipt Date: 20150615
  Transmission Date: 20150821
  Serious: Yes (Other)
  Sender: FDA-Public Use
  Company Number: JP-BAYER-2015-274788

PATIENT
  Age: 7 Year
  Sex: Male

DRUGS (4)
  1. ACETYLSALICYLIC ACID({=100 MG) [Suspect]
     Active Substance: ASPIRIN
     Indication: KAWASAKI^S DISEASE
  2. IMMUNOGLOBULIN [IMMUNOGLOBULIN] [Concomitant]
     Active Substance: HUMAN IMMUNOGLOBULIN G
     Indication: PNEUMONIA
  3. IMMUNOGLOBULIN [IMMUNOGLOBULIN] [Concomitant]
     Active Substance: HUMAN IMMUNOGLOBULIN G
     Indication: KAWASAKI^S DISEASE
     Dosage: 2.0 G/KG
     Route: 042
  4. IMMUNOGLOBULIN [IMMUNOGLOBULIN] [Concomitant]
     Active Substance: HUMAN IMMUNOGLOBULIN G
     Indication: LUNG CONSOLIDATION
     Dosage: UNK
     Route: 042

REACTIONS (6)
  - Lymphadenopathy mediastinal [Recovered/Resolved]
  - Pneumonia [Recovered/Resolved]
  - Drug ineffective [None]
  - Lymphadenopathy [Recovered/Resolved]
  - Lung consolidation [Recovered/Resolved]
  - Pleural effusion [Recovered/Resolved]
